FAERS Safety Report 19408094 (Version 2)
Quarter: 2021Q2

REPORT INFORMATION
  Report Type: Spontaneous
  Country: US (occurrence: US)
  Receive Date: 20210611
  Receipt Date: 20210622
  Transmission Date: 20210717
  Serious: Yes (Other)
  Sender: FDA-Public Use
  Company Number: US-BAUSCH-BL-2021-020615

PATIENT
  Age: 58 Year
  Sex: Female
  Weight: 102.15 kg

DRUGS (2)
  1. TARGRETIN [Suspect]
     Active Substance: BEXAROTENE
     Indication: CUTANEOUS T-CELL LYMPHOMA
     Route: 065
     Dates: start: 20141210, end: 20151220
  2. TARGRETIN [Suspect]
     Active Substance: BEXAROTENE
     Route: 065

REACTIONS (2)
  - Drug ineffective [Unknown]
  - Extra dose administered [Unknown]

NARRATIVE: CASE EVENT DATE: 20141210
